FAERS Safety Report 20428125 (Version 1)
Quarter: 2022Q1

REPORT INFORMATION
  Report Type: Report from Study
  Country: US (occurrence: US)
  Receive Date: 20220204
  Receipt Date: 20220204
  Transmission Date: 20220423
  Serious: Yes (Other)
  Sender: FDA-Public Use
  Company Number: US-ABBVIE-21K-163-3735873-00

PATIENT
  Sex: Male
  Weight: 97.610 kg

DRUGS (4)
  1. HUMIRA [Suspect]
     Active Substance: ADALIMUMAB
     Indication: Hidradenitis
     Route: 058
     Dates: start: 2020
  2. HUMIRA [Suspect]
     Active Substance: ADALIMUMAB
     Route: 058
  3. IRON [Suspect]
     Active Substance: IRON
     Indication: Anaemia
     Route: 065
  4. PRAVASTATIN [Concomitant]
     Active Substance: PRAVASTATIN
     Indication: Blood cholesterol abnormal

REACTIONS (21)
  - Skin cancer [Recovered/Resolved]
  - Hepatic cancer [Not Recovered/Not Resolved]
  - Colon cancer stage IV [Not Recovered/Not Resolved]
  - Cyst rupture [Not Recovered/Not Resolved]
  - Haemorrhagic cyst [Not Recovered/Not Resolved]
  - Hepatic lesion [Not Recovered/Not Resolved]
  - Hepatic steatosis [Not Recovered/Not Resolved]
  - Therapeutic product effect incomplete [Unknown]
  - Haemorrhage [Unknown]
  - Anaemia [Recovering/Resolving]
  - Constipation [Recovering/Resolving]
  - Anal rash [Recovering/Resolving]
  - Anal haemorrhage [Recovering/Resolving]
  - Anaemia [Recovering/Resolving]
  - Constipation [Not Recovered/Not Resolved]
  - Cyst [Not Recovered/Not Resolved]
  - Musculoskeletal disorder [Not Recovered/Not Resolved]
  - Sneezing [Not Recovered/Not Resolved]
  - Urinary incontinence [Not Recovered/Not Resolved]
  - Eye disorder [Not Recovered/Not Resolved]
  - Prostatic operation [Not Recovered/Not Resolved]

NARRATIVE: CASE EVENT DATE: 20200101
